FAERS Safety Report 20805612 (Version 1)
Quarter: 2022Q2

REPORT INFORMATION
  Report Type: Spontaneous
  Country: FR (occurrence: FR)
  Receive Date: 20220510
  Receipt Date: 20220510
  Transmission Date: 20220721
  Serious: Yes (Hospitalization)
  Sender: FDA-Public Use
  Company Number: FR-AFSSAPS-PB20221274

PATIENT
  Age: 57 Year
  Sex: Female
  Weight: 76.5 kg

DRUGS (12)
  1. ATORVASTATIN [Suspect]
     Active Substance: ATORVASTATIN
     Indication: Hypercholesterolaemia
     Dosage: 20 MILLIGRAM, QD, UNTIL 19-FEB-2022
     Route: 048
  2. ATORVASTATIN [Suspect]
     Active Substance: ATORVASTATIN
     Dosage: 80 MILLIGRAM, QD, FOLLOWING HOSPITALIZATION FOR ST- ACS, CARDIOLOGISTS INCREASED ATORVASTATIN DOSAGE
     Route: 048
     Dates: start: 20220219, end: 20220406
  3. CYCLOSPORINE [Suspect]
     Active Substance: CYCLOSPORINE
     Indication: Renal transplant
     Dosage: 75 MILLIGRAM, BID, 75 MG MORNING AND EVENING
     Route: 065
  4. ALLOPURINOL [Concomitant]
     Active Substance: ALLOPURINOL
     Indication: Product used for unknown indication
     Dosage: 100 MILLIGRAM, QD, 1 TABLET IN THE MORNING
     Route: 065
  5. BACTRIM ADULTS, tablet [Concomitant]
     Indication: Product used for unknown indication
     Dosage: 400 MILLIGRAM, 1DOSE/2DAYS, IN THE MORNING, MONDAY/WEDNESDAY/FRIDAY
     Route: 048
     Dates: start: 20220221
  6. ARANESP 60 micrograms, solution for injection in pre-filled pen [Concomitant]
     Indication: Product used for unknown indication
     Dosage: 60 MICROGRAM, WEEKLY, EVERY FRIDAY
     Route: 058
     Dates: start: 20220225
  7. PREDNISONE [Concomitant]
     Active Substance: PREDNISONE
     Indication: Complications of transplanted kidney
     Dosage: 5 MILLIGRAM, DAILY, 1 TABLET IN THE MORNING
     Route: 048
  8. LANSOPRAZOLE [Concomitant]
     Active Substance: LANSOPRAZOLE
     Indication: Product used for unknown indication
     Dosage: 15 MILLIGRAM, QD, IN THE EVENING
     Route: 048
  9. AMLOR 5 mg, capsule [Concomitant]
     Indication: Hypertension
     Dosage: 5 MILLIGRAM, QD, IN THE MORNING
     Route: 065
     Dates: start: 20220219
  10. KARDEGIC [Concomitant]
     Active Substance: ASPIRIN DL-LYSINE
     Indication: Acute coronary syndrome
     Dosage: 75 MILLIGRAM, QD,  THE MORNING
     Route: 048
     Dates: start: 20220219
  11. BISOCE 2.5 mg film-coated tablet [Concomitant]
     Indication: Product used for unknown indication
     Dosage: 2.5 MILLIGRAM, QD, MORNING
     Route: 065
     Dates: start: 20220219
  12. TICAGRELOR [Concomitant]
     Active Substance: TICAGRELOR
     Indication: Acute coronary syndrome
     Dosage: 90 MILLIGRAM, BID, IN THE MORNING AND EVENING
     Route: 048
     Dates: start: 20220219

REACTIONS (9)
  - Hypotension [Not Recovered/Not Resolved]
  - Metabolic acidosis [Not Recovered/Not Resolved]
  - Vomiting [Not Recovered/Not Resolved]
  - Hyperkalaemia [Not Recovered/Not Resolved]
  - Constipation [Not Recovered/Not Resolved]
  - Micturition disorder [Not Recovered/Not Resolved]
  - Acute kidney injury [Not Recovered/Not Resolved]
  - Rhabdomyolysis [Not Recovered/Not Resolved]
  - Hepatocellular injury [Not Recovered/Not Resolved]

NARRATIVE: CASE EVENT DATE: 20220323
